FAERS Safety Report 23578475 (Version 1)
Quarter: 2024Q1

REPORT INFORMATION
  Report Type: Report from Study
  Country: GB (occurrence: GB)
  Receive Date: 20240229
  Receipt Date: 20240229
  Transmission Date: 20240410
  Serious: Yes (Hospitalization, Other)
  Sender: FDA-Public Use
  Company Number: GB-SAMSUNG BIOEPIS-SB-2024-05892

PATIENT
  Age: 68 Year
  Sex: Male

DRUGS (4)
  1. IMRALDI [Suspect]
     Active Substance: ADALIMUMAB
     Indication: Psoriasis
     Route: 065
     Dates: start: 20191015, end: 20200313
  2. IMRALDI [Suspect]
     Active Substance: ADALIMUMAB
     Route: 065
     Dates: start: 20200602, end: 20231125
  3. IMRALDI [Suspect]
     Active Substance: ADALIMUMAB
     Route: 065
     Dates: start: 20240101
  4. FLUCLOXACILLIN [Concomitant]
     Active Substance: FLUCLOXACILLIN
     Indication: Product used for unknown indication
     Route: 065
     Dates: start: 20231201, end: 20231211

REACTIONS (1)
  - Hypokalaemia [Recovered/Resolved]

NARRATIVE: CASE EVENT DATE: 20230831
